FAERS Safety Report 12713989 (Version 1)
Quarter: 2016Q3

REPORT INFORMATION
  Report Type: Spontaneous
  Country: US (occurrence: US)
  Receive Date: 20160905
  Receipt Date: 20160905
  Transmission Date: 20161109
  Serious: No
  Sender: FDA-Public Use
  Company Number: US-ASTRAZENECA-2016SE92115

PATIENT
  Age: 74 Year
  Sex: Female
  Weight: 63.5 kg

DRUGS (7)
  1. SYMBICORT [Suspect]
     Active Substance: BUDESONIDE\FORMOTEROL FUMARATE DIHYDRATE
     Indication: BRONCHITIS
     Dosage: 160/4.5MCG , 2 PUFFS IN THE MORNING AND 2 PUFFS IN THE LATE AFTERNOON FOR ABOUT 7-8 YEARS
     Route: 055
     Dates: start: 2008
  2. SPIRIVA [Concomitant]
     Active Substance: TIOTROPIUM BROMIDE MONOHYDRATE
     Indication: CHRONIC OBSTRUCTIVE PULMONARY DISEASE
     Dosage: DAILY
     Route: 055
  3. SYNTHROID [Concomitant]
     Active Substance: LEVOTHYROXINE SODIUM
     Indication: AUTOIMMUNE THYROIDITIS
     Route: 048
     Dates: start: 2012
  4. VENTOLIN [Concomitant]
     Active Substance: ALBUTEROL SULFATE
     Indication: CHRONIC OBSTRUCTIVE PULMONARY DISEASE
     Route: 055
  5. LOSARTAN. [Concomitant]
     Active Substance: LOSARTAN
     Indication: BLOOD PRESSURE ABNORMAL
     Dosage: 50MG TWICE DAILY
     Route: 048
     Dates: start: 2014
  6. OXYGEN. [Concomitant]
     Active Substance: OXYGEN
     Indication: CHRONIC OBSTRUCTIVE PULMONARY DISEASE
     Dosage: 2.0L UNKNOWN
     Route: 045
  7. SYMBICORT [Suspect]
     Active Substance: BUDESONIDE\FORMOTEROL FUMARATE DIHYDRATE
     Indication: CHRONIC OBSTRUCTIVE PULMONARY DISEASE
     Dosage: 160/4.5MCG , 2 PUFFS IN THE MORNING AND 2 PUFFS IN THE LATE AFTERNOON FOR ABOUT 7-8 YEARS
     Route: 055
     Dates: start: 2008

REACTIONS (7)
  - Macular degeneration [Unknown]
  - Chronic obstructive pulmonary disease [Recovered/Resolved]
  - Tracheal deviation [Unknown]
  - Autoimmune thyroiditis [Unknown]
  - Blood pressure increased [Unknown]
  - Goitre [Unknown]
  - Lung infection pseudomonal [Unknown]

NARRATIVE: CASE EVENT DATE: 2011
